FAERS Safety Report 19231961 (Version 1)
Quarter: 2021Q2

REPORT INFORMATION
  Report Type: Spontaneous
  Country: US (occurrence: US)
  Receive Date: 20210507
  Receipt Date: 20210507
  Transmission Date: 20210717
  Serious: No
  Sender: FDA-Public Use
  Company Number: US-NEURELIS, INC.-2021NEU000034

PATIENT

DRUGS (1)
  1. VALTOCO [Suspect]
     Active Substance: DIAZEPAM
     Indication: SEIZURE
     Dosage: 20 MG, 2 SEPARATE SPRAYERS INTO EACH NOSTRIL
     Route: 045
     Dates: start: 202103

REACTIONS (1)
  - Drug ineffective [Unknown]

NARRATIVE: CASE EVENT DATE: 202103
